FAERS Safety Report 19130057 (Version 2)
Quarter: 2021Q2

REPORT INFORMATION
  Report Type: Spontaneous
  Country: IT (occurrence: IT)
  Receive Date: 20210413
  Receipt Date: 20210416
  Transmission Date: 20210717
  Serious: Yes (Other)
  Sender: FDA-Public Use
  Company Number: IT-GILEAD-2021-0524064

PATIENT
  Age: 62 Year
  Sex: Male
  Weight: 75 kg

DRUGS (2)
  1. VEKLURY [Suspect]
     Active Substance: REMDESIVIR
     Indication: COVID-19
     Dosage: 100 MG, QD
     Route: 041
     Dates: start: 20210325, end: 20210326
  2. VEKLURY [Suspect]
     Active Substance: REMDESIVIR
     Dosage: 200 MG, QD
     Route: 041

REACTIONS (2)
  - Extrasystoles [Recovered/Resolved]
  - Sinus bradycardia [Recovered/Resolved]

NARRATIVE: CASE EVENT DATE: 20210326
